FAERS Safety Report 11193181 (Version 1)
Quarter: 2015Q2

REPORT INFORMATION
  Report Type: Spontaneous
  Country: US (occurrence: None)
  Receive Date: 20150615
  Receipt Date: 20150615
  Transmission Date: 20150821
  Serious: Yes (Hospitalization, Other)
  Sender: FDA-Public Use
  Company Number: None

PATIENT
  Age: 53 Year
  Sex: Female
  Weight: 73.48 kg

DRUGS (5)
  1. LASTACAFT [Suspect]
     Active Substance: ALCAFTADINE
     Dosage: 1 DROP INTO BOTH EYES ONCE DAILY
     Route: 047
     Dates: start: 20150422, end: 20150423
  2. KNEE BRACER [Concomitant]
  3. BACK BRACER [Concomitant]
  4. LASTACAFT [Suspect]
     Active Substance: ALCAFTADINE
     Indication: PRURITUS ALLERGIC
     Dosage: 1 DROP INTO BOTH EYES ONCE DAILY
     Route: 047
     Dates: start: 20150422, end: 20150423
  5. NEUBUTIZER [Concomitant]

REACTIONS (5)
  - Headache [None]
  - Swelling face [None]
  - Dyspnoea [None]
  - Eye pain [None]
  - Skin burning sensation [None]

NARRATIVE: CASE EVENT DATE: 20150422
